FAERS Safety Report 6837023-9 (Version None)
Quarter: 2010Q3

REPORT INFORMATION
  Report Type: 
  Country: None (occurrence: None)
  Receive Date: 20100713
  Receipt Date: 20070501
  Transmission Date: 20110219
  Serious: No
  Sender: FDA-Public Use
  Company Number: US-PFIZER INC-2007036445

PATIENT
  Sex: Female
  Weight: 77.11 kg

DRUGS (3)
  1. CHANTIX [Suspect]
     Dates: start: 20070201
  2. NASAL PREPARATIONS [Concomitant]
  3. ANTIBIOTICS [Concomitant]

REACTIONS (2)
  - NASOPHARYNGITIS [None]
  - NAUSEA [None]
